FAERS Safety Report 20537169 (Version 1)
Quarter: 2022Q1

REPORT INFORMATION
  Report Type: Report from Study
  Country: JP (occurrence: JP)
  Receive Date: 20220302
  Receipt Date: 20220302
  Transmission Date: 20220423
  Serious: Yes (Hospitalization)
  Sender: FDA-Public Use
  Company Number: JP-ELI_LILLY_AND_COMPANY-JP202202006464

PATIENT
  Age: 8 Year
  Sex: Female
  Weight: 21.6 kg

DRUGS (13)
  1. ABEMACICLIB [Suspect]
     Active Substance: ABEMACICLIB
     Indication: Glioblastoma
     Dosage: 50 MG, BID
     Route: 048
     Dates: start: 20211018
  2. TEMOZOLOMIDE [Suspect]
     Active Substance: TEMOZOLOMIDE
     Indication: Glioblastoma
     Dosage: 80 MG, DAYS 1 TO 5 OF A 21 DAY CYCLE
     Route: 048
     Dates: start: 20211018, end: 20220208
  3. IRINOTECAN [Suspect]
     Active Substance: IRINOTECAN
     Indication: Glioblastoma
     Dosage: 41 MG, DAYS 1 TO 5 OF A 21 DAY CYCLE
     Route: 042
     Dates: start: 20211018, end: 20220208
  4. SULFAMETHOXAZOLE\TRIMETHOPRIM [Concomitant]
     Active Substance: SULFAMETHOXAZOLE\TRIMETHOPRIM
     Indication: Prophylaxis
     Dosage: UNK
     Dates: start: 20211012
  5. LIDOCAINE\PRILOCAINE [Concomitant]
     Active Substance: LIDOCAINE\PRILOCAINE
     Indication: Prophylaxis
     Dosage: UNK
     Dates: start: 20211013
  6. CEFPODOXIME PROXETIL [Concomitant]
     Active Substance: CEFPODOXIME PROXETIL
     Indication: Prophylaxis
     Dosage: UNK
     Dates: start: 20211017
  7. ACETAMINOPHEN [Concomitant]
     Active Substance: ACETAMINOPHEN
     Indication: Abdominal pain
     Dosage: UNK
     Dates: start: 20211018
  8. DEXTROSE\POTASSIUM CHLORIDE\SODIUM CHLORIDE\SODIUM LACTATE [Concomitant]
     Active Substance: DEXTROSE\POTASSIUM CHLORIDE\SODIUM CHLORIDE\SODIUM LACTATE
     Indication: Prophylaxis
  9. HYDROXYZINE HYDROCHLORIDE [Concomitant]
     Active Substance: HYDROXYZINE HYDROCHLORIDE
     Indication: Insomnia
     Dosage: UNK
     Dates: start: 20211026
  10. UNSPECIFIED INGREDIENT [Concomitant]
     Active Substance: UNSPECIFIED INGREDIENT
     Indication: Abdominal pain
     Dosage: UNK
     Dates: start: 20211101
  11. LOPERAMIDE HYDROCHLORIDE [Concomitant]
     Active Substance: LOPERAMIDE HYDROCHLORIDE
     Indication: Prophylaxis
     Dosage: UNK
     Dates: start: 20211109
  12. GRANISETRON HYDROCHLORIDE [Concomitant]
     Active Substance: GRANISETRON HYDROCHLORIDE
     Indication: Prophylaxis
     Dosage: UNK
     Dates: start: 20211115
  13. FOSAPREPITANT [Concomitant]
     Active Substance: FOSAPREPITANT
     Indication: Prophylaxis

REACTIONS (1)
  - Dehydration [Recovered/Resolved]

NARRATIVE: CASE EVENT DATE: 20220215
